FAERS Safety Report 8950336 (Version 1)
Quarter: 2012Q4

REPORT INFORMATION
  Report Type: Spontaneous
  Country: US (occurrence: None)
  Receive Date: 20121130
  Receipt Date: 20121130
  Transmission Date: 20130627
  Serious: No
  Sender: FDA-Public Use
  Company Number: None

PATIENT
  Age: 70 Year
  Sex: Male
  Weight: 77.1 kg

DRUGS (1)
  1. ENZALUTAMIDE [Suspect]
     Indication: PROSTATE CANCER
     Dosage: 160mg daily po
     Route: 048
     Dates: start: 20121112, end: 20121116

REACTIONS (4)
  - Arthralgia [None]
  - Dyspnoea [None]
  - Dizziness [None]
  - Haematuria [None]
